FAERS Safety Report 4825135-0 (Version None)
Quarter: 2005Q4

REPORT INFORMATION
  Report Type: 
  Country: None (occurrence: None)
  Receive Date: 20051109
  Receipt Date: 20051109
  Transmission Date: 20060501
  Serious: Yes (Disabling)
  Sender: FDA-Public Use
  Company Number: None

PATIENT
  Age: 55 Year
  Sex: Male
  Weight: 77.1115 kg

DRUGS (2)
  1. VIAGRA [Suspect]
     Indication: ERECTILE DYSFUNCTION
     Dosage: 1-2 TIMES A WEEK A FEW YEARS
  2. LEVITRA [Concomitant]

REACTIONS (3)
  - DYSPAREUNIA [None]
  - PAINFUL ERECTION [None]
  - PEYRONIE'S DISEASE [None]
